FAERS Safety Report 15677360 (Version 1)
Quarter: 2018Q4

REPORT INFORMATION
  Report Type: Spontaneous
  Country: US (occurrence: US)
  Receive Date: 20181130
  Receipt Date: 20181130
  Transmission Date: 20190205
  Serious: No
  Sender: FDA-Public Use
  Company Number: US-SA-2018SA152476

PATIENT
  Age: 57 Year
  Sex: Female

DRUGS (1)
  1. ICY HOT MEDICATED, BACK [Suspect]
     Active Substance: MENTHOL

REACTIONS (1)
  - Skin burning sensation [Unknown]
